FAERS Safety Report 5398118-2 (Version None)
Quarter: 2007Q3

REPORT INFORMATION
  Report Type: 
  Country: None (occurrence: None)
  Receive Date: 20070726
  Receipt Date: 20070716
  Transmission Date: 20080115
  Serious: Yes (Hospitalization)
  Sender: FDA-Public Use
  Company Number: PT-ELI_LILLY_AND_COMPANY-PT200703001906

PATIENT
  Age: 55 Year
  Sex: Male
  Weight: 75 kg

DRUGS (7)
  1. DULOXETINE HYDROCHLORIDE [Suspect]
     Indication: BIPOLAR I DISORDER
     Dosage: 60 MG, EACH MORNING
     Route: 048
     Dates: start: 20061202, end: 20070103
  2. ZYPREXA [Suspect]
     Indication: BIPOLAR DISORDER
     Dosage: 5 MG, EACH EVENING
     Route: 048
     Dates: start: 20030607, end: 20061218
  3. DIAZEPAM [Concomitant]
     Dosage: 3 MG, 4/D
     Route: 048
     Dates: start: 20031218, end: 20061230
  4. AKINETON [Concomitant]
     Indication: AKATHISIA
     Dosage: UNK, UNKNOWN
     Route: 065
     Dates: start: 20061202
  5. FLURAZEPAM [Concomitant]
     Dosage: 15 MG, EACH EVENING
     Route: 065
     Dates: start: 20061202, end: 20070110
  6. ZOLPIDEM TARTRATE [Concomitant]
     Dosage: 10 MG, UNKNOWN
     Route: 065
  7. ANTIHYPERTENSIVES [Concomitant]
     Dosage: UNK, UNKNOWN
     Route: 065

REACTIONS (3)
  - AKATHISIA [None]
  - DRUG TOXICITY [None]
  - SUICIDE ATTEMPT [None]
